FAERS Safety Report 5287106-2 (Version None)
Quarter: 2007Q2

REPORT INFORMATION
  Report Type: 
  Country: None (occurrence: None)
  Receive Date: 20070404
  Receipt Date: 20070323
  Transmission Date: 20071010
  Serious: Yes (Other)
  Sender: FDA-Public Use
  Company Number: US-PFIZER INC-2007007744

PATIENT
  Sex: Male
  Weight: 77.1 kg

DRUGS (5)
  1. CHANTIX [Suspect]
     Indication: SMOKING CESSATION THERAPY
     Route: 048
     Dates: start: 20061123, end: 20070301
  2. VIREAD [Interacting]
     Indication: HIV INFECTION
     Route: 048
  3. ANTIVIRALS FOR SYSTEMIC USE [Concomitant]
  4. DEPAKOTE [Concomitant]
  5. VYTORIN [Concomitant]

REACTIONS (6)
  - BLOOD CREATININE INCREASED [None]
  - DECREASED APPETITE [None]
  - DRUG INTERACTION [None]
  - INFLUENZA LIKE ILLNESS [None]
  - SMOKER [None]
  - WEIGHT INCREASED [None]
